FAERS Safety Report 8210067-0 (Version None)
Quarter: 2012Q1

REPORT INFORMATION
  Report Type: 
  Country: None (occurrence: None)
  Receive Date: 20120314
  Receipt Date: 20110929
  Transmission Date: 20120608
  Serious: No
  Sender: FDA-Public Use
  Company Number: US-ASTRAZENECA-2011SE58895

PATIENT
  Age: 81 Year
  Sex: Male

DRUGS (8)
  1. LANTUS [Suspect]
     Dosage: 100 IU/ML, 50 UNITS ONCE DAILY
     Route: 058
     Dates: start: 20080101
  2. LESCOL [Suspect]
  3. METFORMIN HYDROCHLORIDE [Suspect]
  4. TOPROL-XL [Suspect]
     Route: 048
  5. JANUVIA [Suspect]
  6. AMARYL [Suspect]
     Route: 048
     Dates: end: 20110701
  7. AMARYL [Suspect]
     Route: 048
     Dates: start: 20110701
  8. TRILIPIX [Suspect]

REACTIONS (4)
  - MYALGIA [None]
  - ARTHRALGIA [None]
  - MUSCLE SPASMS [None]
  - MUSCULAR WEAKNESS [None]
